FAERS Safety Report 8880708 (Version 1)
Quarter: 2012Q4

REPORT INFORMATION
  Report Type: 
  Country: BE (occurrence: BE)
  Receive Date: 20121101
  Receipt Date: 20121101
  Transmission Date: 20130627
  Serious: Yes (Other)
  Sender: FDA-Public Use
  Company Number: BE-JNJFOC-20121016728

PATIENT
  Sex: Female

DRUGS (7)
  1. XARELTO [Suspect]
     Indication: CEREBROVASCULAR ACCIDENT PROPHYLAXIS
     Route: 065
     Dates: start: 20120913, end: 20120918
  2. XARELTO [Suspect]
     Indication: ATRIAL FIBRILLATION
     Route: 065
     Dates: start: 20120913, end: 20120918
  3. LANOXIN [Concomitant]
     Route: 065
  4. GLUCOPHAGE [Concomitant]
     Route: 065
  5. LIPITOR [Concomitant]
     Route: 065
  6. EMCONCOR [Concomitant]
     Route: 065
  7. AMIODARONE [Concomitant]
     Route: 065

REACTIONS (1)
  - Renal failure acute [Recovering/Resolving]
